FAERS Safety Report 24387835 (Version 1)
Quarter: 2024Q4

REPORT INFORMATION
  Report Type: Spontaneous
  Country: US (occurrence: None)
  Receive Date: 20241002
  Receipt Date: 20241002
  Transmission Date: 20250115
  Serious: Yes (Hospitalization)
  Sender: Public
  Company Number: None

PATIENT
  Age: 63 Year
  Sex: Female

DRUGS (3)
  1. HUMIRA [Suspect]
     Active Substance: ADALIMUMAB
     Indication: Crohn^s disease
     Dosage: OTHER FREQUENCY : EVERY14DAYS;?
     Route: 058
     Dates: start: 202001
  2. CIPROFLOXACIN [Concomitant]
  3. PREDNISONE [Concomitant]

REACTIONS (2)
  - Small intestinal obstruction [None]
  - Abdominal pain [None]

NARRATIVE: CASE EVENT DATE: 20240908
